FAERS Safety Report 13718246 (Version 1)
Quarter: 2017Q3

REPORT INFORMATION
  Report Type: Other
  Country: GB (occurrence: GB)
  Receive Date: 20170705
  Receipt Date: 20170705
  Transmission Date: 20171127
  Serious: Yes (Life-Threatening, Other)
  Sender: FDA-Public Use
  Company Number: GB-PERRIGO-17GB024819

PATIENT
  Age: 80 Year
  Sex: Female

DRUGS (1)
  1. IBUPROFEN. [Suspect]
     Active Substance: IBUPROFEN
     Indication: ORTHOPAEDIC PROCEDURE
     Dosage: 400 MG, TID
     Route: 048
     Dates: start: 20140915, end: 20141009

REACTIONS (3)
  - Upper gastrointestinal haemorrhage [Unknown]
  - Drug prescribing error [Unknown]
  - Microcytic anaemia [Recovered/Resolved]

NARRATIVE: CASE EVENT DATE: 20141009
